FAERS Safety Report 10015929 (Version 1)
Quarter: 2014Q1

REPORT INFORMATION
  Report Type: Spontaneous
  Country: US (occurrence: US)
  Receive Date: 20140317
  Receipt Date: 20140317
  Transmission Date: 20141002
  Serious: Yes (Hospitalization)
  Sender: FDA-Public Use
  Company Number: US-ASTRAZENECA-2014SE16757

PATIENT
  Age: 65 Year
  Sex: Female

DRUGS (6)
  1. MEPIVACAINE [Suspect]
     Indication: LOCAL ANAESTHESIA
     Route: 053
  2. ROPIVACAINE [Suspect]
     Indication: LOCAL ANAESTHESIA
     Route: 053
  3. PROPOFOL [Concomitant]
     Indication: SEDATIVE THERAPY
     Route: 042
  4. FENTANYL [Concomitant]
     Indication: SEDATIVE THERAPY
     Dosage: 25 MCG
  5. MIDAZOLAM [Concomitant]
     Indication: SEDATIVE THERAPY
     Dosage: 1 MG
  6. MIDAZOLAM [Concomitant]
     Indication: SEDATIVE THERAPY
     Dosage: 1 MG

REACTIONS (1)
  - Phrenic nerve paralysis [Unknown]
